FAERS Safety Report 18563642 (Version 1)
Quarter: 2020Q4

REPORT INFORMATION
  Report Type: Spontaneous
  Country: US (occurrence: US)
  Receive Date: 20201201
  Receipt Date: 20201201
  Transmission Date: 20210114
  Serious: Yes (Other)
  Sender: FDA-Public Use
  Company Number: US-HIKMA PHARMACEUTICALS USA INC.-US-H14001-20-05331

PATIENT
  Age: 58 Year
  Sex: Female

DRUGS (2)
  1. MORPHINE SULPHATE [Suspect]
     Active Substance: MORPHINE SULFATE
     Indication: PAIN MANAGEMENT
     Dosage: UNKNOWN
     Route: 065
  2. MORPHINE [Suspect]
     Active Substance: MORPHINE
     Indication: PAIN MANAGEMENT
     Dosage: UNKNOWN; MANUFACTURER RHOADES
     Route: 065

REACTIONS (4)
  - Malaise [Unknown]
  - Nervousness [Unknown]
  - Coeliac disease [Not Recovered/Not Resolved]
  - Weight decreased [Unknown]
